FAERS Safety Report 25767685 (Version 2)
Quarter: 2025Q3

REPORT INFORMATION
  Report Type: Report from Study
  Country: EU (occurrence: EU)
  Receive Date: 20250905
  Receipt Date: 20250917
  Transmission Date: 20251020
  Serious: Yes (Other)
  Sender: EMD SERONO INC
  Company Number: EU-Merck Healthcare KGaA-2025044271

PATIENT
  Age: 26 Year
  Sex: Female

DRUGS (6)
  1. CLADRIBINE [Suspect]
     Active Substance: CLADRIBINE
     Indication: Relapsing multiple sclerosis
     Dates: start: 20201207, end: 20201211
  2. CLADRIBINE [Suspect]
     Active Substance: CLADRIBINE
     Dates: start: 20210107, end: 20210111
  3. CLADRIBINE [Suspect]
     Active Substance: CLADRIBINE
     Dates: start: 20211207, end: 20211217
  4. CLADRIBINE [Suspect]
     Active Substance: CLADRIBINE
     Dates: start: 20220111, end: 20220115
  5. METOPROLOL [Concomitant]
     Active Substance: METOPROLOL
     Indication: Hypertension
     Dates: start: 20210328, end: 20210328
  6. TROSPIUM CHLORIDE [Concomitant]
     Active Substance: TROSPIUM CHLORIDE
     Indication: Incontinence

REACTIONS (2)
  - Abortion spontaneous [Recovered/Resolved]
  - Maternal exposure before pregnancy [Recovered/Resolved]

NARRATIVE: CASE EVENT DATE: 20250319
